FAERS Safety Report 7217231-8 (Version None)
Quarter: 2011Q1

REPORT INFORMATION
  Report Type: 
  Country: None (occurrence: None)
  Receive Date: 20110110
  Receipt Date: 20101230
  Transmission Date: 20110831
  Serious: Yes (Other)
  Sender: FDA-Public Use
  Company Number: BR-PFIZER INC-2010181653

PATIENT
  Age: 44 Year
  Sex: Female
  Weight: 67 kg

DRUGS (6)
  1. LEXOTAN [Concomitant]
     Dosage: UNK
  2. DOSTINEX [Concomitant]
     Dosage: UNK
  3. LYRICA [Suspect]
     Indication: NEURALGIA
     Dosage: 75 MG, 1X/DAY
     Route: 048
     Dates: start: 20101224, end: 20101224
  4. PHENERGAN [Concomitant]
     Dosage: UNK
  5. SERTRALINE [Concomitant]
     Dosage: UNK
  6. DEPAKOTE [Concomitant]
     Dosage: UNK

REACTIONS (5)
  - ABNORMAL BEHAVIOUR [None]
  - HALLUCINATION [None]
  - CONFUSIONAL STATE [None]
  - SLEEP DISORDER [None]
  - SOMNOLENCE [None]
